FAERS Safety Report 7713583-0 (Version None)
Quarter: 2011Q3

REPORT INFORMATION
  Report Type: 
  Country: None (occurrence: None)
  Receive Date: 20110826
  Receipt Date: 20110822
  Transmission Date: 20111222
  Serious: Yes (Hospitalization, Congenital Anomaly, Other)
  Sender: FDA-Public Use
  Company Number: US-PFIZER INC-2011177266

PATIENT
  Sex: Female
  Weight: 3 kg

DRUGS (2)
  1. EFFEXOR XR [Suspect]
     Indication: ANXIETY
     Dosage: 75 MG, UNK
     Route: 064
  2. EFFEXOR XR [Suspect]
     Indication: DEPRESSION

REACTIONS (5)
  - CONGENITAL PULMONARY VALVE ATRESIA [None]
  - MATERNAL EXPOSURE DURING PREGNANCY [None]
  - MATERNAL DRUGS AFFECTING FOETUS [None]
  - FALLOT'S TETRALOGY [None]
  - HYPOGLYCAEMIA [None]
